FAERS Safety Report 7589417-4 (Version None)
Quarter: 2011Q3

REPORT INFORMATION
  Report Type: 
  Country: None (occurrence: None)
  Receive Date: 20110705
  Receipt Date: 20110617
  Transmission Date: 20111222
  Serious: No
  Sender: FDA-Public Use
  Company Number: US-ROXANE LABORATORIES, INC.-2011-RO-00890RO

PATIENT
  Sex: Male

DRUGS (1)
  1. ACARBOSE [Suspect]
     Indication: DIABETES MELLITUS
     Dosage: 75 MG
     Route: 048
     Dates: start: 20110422, end: 20110522

REACTIONS (7)
  - FLATULENCE [None]
  - CONSTIPATION [None]
  - RASH [None]
  - FAECALOMA [None]
  - DIARRHOEA [None]
  - ANORECTAL DISCOMFORT [None]
  - INFECTION [None]
